FAERS Safety Report 6880251-7 (Version None)
Quarter: 2010Q3

REPORT INFORMATION
  Report Type: 
  Country: None (occurrence: None)
  Receive Date: 20100728
  Receipt Date: 20100715
  Transmission Date: 20110219
  Serious: Yes (Other)
  Sender: FDA-Public Use
  Company Number: BR-PFIZER INC-2010088464

PATIENT
  Age: 63 Year
  Sex: Female

DRUGS (5)
  1. LYRICA [Suspect]
     Indication: PAIN
     Dosage: UNK, 2X/DAY
     Route: 048
     Dates: start: 20100607, end: 20100101
  2. SIMVASTATIN [Concomitant]
     Indication: BLOOD CHOLESTEROL INCREASED
     Dosage: 20 MG, UNK
  3. DIOVAN [Concomitant]
     Indication: HYPERTENSION
     Dosage: UNK
  4. APRESOLINE [Concomitant]
     Dosage: UNK
  5. HIDANTAL [Concomitant]
     Dosage: UNK

REACTIONS (6)
  - DYSARTHRIA [None]
  - EYE SWELLING [None]
  - LETHARGY [None]
  - PAIN [None]
  - SOMNOLENCE [None]
  - SWELLING FACE [None]
